FAERS Safety Report 13323525 (Version 1)
Quarter: 2017Q1

REPORT INFORMATION
  Report Type: Spontaneous
  Country: GB (occurrence: GB)
  Receive Date: 20170310
  Receipt Date: 20170310
  Transmission Date: 20170428
  Serious: Yes (Other)
  Sender: FDA-Public Use
  Company Number: GB-ALLERGAN-1709166US

PATIENT
  Age: 42 Year
  Sex: Female
  Weight: 86 kg

DRUGS (10)
  1. PARACETAMOL [Concomitant]
     Active Substance: ACETAMINOPHEN
     Dosage: ONE TO TWO TO BE TAKEN FOUR TIMES A DAY.
     Dates: start: 20161117
  2. LACTULOSE. [Concomitant]
     Active Substance: LACTULOSE
     Route: 065
     Dates: start: 20161117, end: 20161220
  3. OMEPRAZOLE. [Concomitant]
     Active Substance: OMEPRAZOLE
     Indication: DYSPEPSIA
     Dates: start: 20161117
  4. ZOPICLONE [Concomitant]
     Active Substance: ZOPICLONE
     Indication: SLEEP DISORDER
     Dosage: TAKE HALF TO ONE TABLET AT NIGHT.
     Route: 065
     Dates: start: 20161117
  5. NAPROXEN. [Concomitant]
     Active Substance: NAPROXEN
     Dosage: MAXIMUM THREE TIMES DAILY.
     Dates: start: 20161117, end: 20170203
  6. CANESTEN [Concomitant]
     Active Substance: CLOTRIMAZOLE
     Dates: start: 20170105, end: 20170105
  7. QUETIAPINE. [Concomitant]
     Active Substance: QUETIAPINE
     Dosage: NIGHT.
     Dates: start: 20161117
  8. ESCITALOPRAM OXALATE - BP [Suspect]
     Active Substance: ESCITALOPRAM OXALATE
     Indication: PRODUCT USED FOR UNKNOWN INDICATION
     Dates: start: 20161117
  9. CLOTRIMAZOLE. [Concomitant]
     Active Substance: CLOTRIMAZOLE
     Dosage: USE AS DIRECTED.
     Dates: start: 20161223, end: 20161224
  10. HYDROCORTISONE. [Concomitant]
     Active Substance: HYDROCORTISONE
     Dates: start: 20170105, end: 20170119

REACTIONS (3)
  - Skin fissures [Recovered/Resolved]
  - Blister [Recovered/Resolved]
  - Skin exfoliation [Recovered/Resolved]

NARRATIVE: CASE EVENT DATE: 20170109
